FAERS Safety Report 21982081 (Version 1)
Quarter: 2023Q1

REPORT INFORMATION
  Report Type: Spontaneous
  Country: US (occurrence: US)
  Receive Date: 20230213
  Receipt Date: 20230213
  Transmission Date: 20230418
  Serious: No
  Sender: FDA-Public Use
  Company Number: US-ABBVIE-4272363

PATIENT
  Sex: Female

DRUGS (1)
  1. HUMIRA [Suspect]
     Active Substance: ADALIMUMAB
     Indication: Psoriatic arthropathy
     Dosage: EVENT OF SICKNESS WAS STARTED ON AN UNKNOWN DATE IN 2022
     Route: 058
     Dates: start: 202207

REACTIONS (2)
  - Illness [Unknown]
  - Cough [Unknown]
